FAERS Safety Report 4501267-1 (Version None)
Quarter: 2004Q4

REPORT INFORMATION
  Report Type: 
  Country: None (occurrence: None)
  Receive Date: 20040927
  Receipt Date: 20040616
  Transmission Date: 20050328
  Serious: No
  Sender: FDA-Public Use
  Company Number: USA030639971

PATIENT
  Age: 7 Year
  Sex: Male
  Weight: 23 kg

DRUGS (2)
  1. STRATTERA [Suspect]
     Indication: ATTENTION DEFICIT/HYPERACTIVITY DISORDER
     Dosage: 18 MG/1 DAY
  2. CELEXA [Concomitant]

REACTIONS (5)
  - ANOREXIA [None]
  - DEPRESSION [None]
  - DRUG INEFFECTIVE [None]
  - MOOD SWINGS [None]
  - PHOTOSENSITIVITY REACTION [None]
